FAERS Safety Report 7751188-6 (Version None)
Quarter: 2011Q3

REPORT INFORMATION
  Report Type: 
  Country: None (occurrence: None)
  Receive Date: 20110914
  Receipt Date: 20080828
  Transmission Date: 20111222
  Serious: Yes (Death)
  Sender: FDA-Public Use
  Company Number: PHHY2008NL37315

PATIENT
  Sex: Male

DRUGS (4)
  1. SANDOSTATIN LAR [Suspect]
     Dosage: 30 MG,  EVERY 3 WEEKS
     Route: 030
     Dates: start: 20080804
  2. SANDOSTATIN LAR [Suspect]
     Dosage: 20 MG, EVERY 3 WEEKS
     Route: 030
     Dates: start: 20070924
  3. SANDOSTATIN LAR [Suspect]
     Indication: CARCINOID TUMOUR
     Dosage: 20 MG, EVERY 3 WEEKS
     Route: 030
     Dates: start: 20051010
  4. SANDOSTATIN LAR [Suspect]
     Dosage: 30 MG, EVERY 3 WEEKS
     Route: 030
     Dates: start: 20071115

REACTIONS (1)
  - DEATH [None]
